FAERS Safety Report 7593166-6 (Version None)
Quarter: 2011Q3

REPORT INFORMATION
  Report Type: 
  Country: None (occurrence: None)
  Receive Date: 20110706
  Receipt Date: 20110629
  Transmission Date: 20111222
  Serious: Yes (Hospitalization)
  Sender: FDA-Public Use
  Company Number: JP-JNJFOC-20110312356

PATIENT
  Sex: Female
  Weight: 39 kg

DRUGS (10)
  1. NOVORAPID [Concomitant]
     Route: 065
  2. HUMALOG [Concomitant]
     Indication: DIABETES MELLITUS
     Route: 058
  3. CALCIUM CARBONATE [Concomitant]
     Route: 048
  4. ITRACONAZOLE [Concomitant]
     Route: 048
     Dates: start: 20110310, end: 20110311
  5. AMLODIPINE [Concomitant]
     Route: 048
  6. ITRACONAZOLE [Suspect]
     Indication: BRONCHOPULMONARY ASPERGILLOSIS
     Route: 041
     Dates: start: 20110308, end: 20110309
  7. ITRACONAZOLE [Concomitant]
     Route: 048
     Dates: start: 20110310, end: 20110311
  8. ITRACONAZOLE [Suspect]
     Indication: PULMONARY NECROSIS
     Route: 041
     Dates: start: 20110308, end: 20110309
  9. BASEN [Concomitant]
     Route: 048
  10. ADONA [Concomitant]
     Route: 065

REACTIONS (4)
  - INTERSTITIAL LUNG DISEASE [None]
  - NAUSEA [None]
  - RESPIRATORY FAILURE [None]
  - PYREXIA [None]
